FAERS Safety Report 16236404 (Version 1)
Quarter: 2019Q2

REPORT INFORMATION
  Report Type: Other
  Country: NO (occurrence: NO)
  Receive Date: 20190425
  Receipt Date: 20190425
  Transmission Date: 20190711
  Serious: Yes (Hospitalization)
  Sender: FDA-Public Use
  Company Number: NO-DENTSPLY-2019SCDP000254

PATIENT
  Age: 20 Year
  Sex: Female

DRUGS (5)
  1. ULTIVA [Concomitant]
     Active Substance: REMIFENTANIL HYDROCHLORIDE
     Indication: TONSILLECTOMY
     Dosage: 200 MG, UNK
     Route: 042
     Dates: start: 20190318, end: 20190318
  2. PROPOFOL-LIPURO [Concomitant]
     Active Substance: PROPOFOL
     Indication: TONSILLECTOMY
     Dosage: 250 MG, UNK
     Route: 042
     Dates: start: 20190318, end: 20190318
  3. FENTANYL-HAMELN [Concomitant]
     Active Substance: FENTANYL CITRATE
     Indication: TONSILLECTOMY
     Dosage: 200 M (IU)
     Route: 042
     Dates: start: 20190318, end: 20190318
  4. ESMERON [Concomitant]
     Active Substance: ROCURONIUM BROMIDE
     Indication: TONSILLECTOMY
     Dosage: 30 MG, UNK
     Route: 042
     Dates: start: 20190318, end: 20190318
  5. XYLOCAINE WITH ADRENALINE (EPINEPHRINE) [Suspect]
     Active Substance: EPINEPHRINE BITARTRATE\LIDOCAINE HYDROCHLORIDE
     Indication: TONSILLECTOMY
     Dosage: 8 ML IN TOTAL ADMINISTERED: 10 MG/ML LIDOCAINE + 5 MCG/ML ADRENALINE (=EPINEPHRINE)
     Dates: start: 20190318, end: 20190318

REACTIONS (4)
  - Hypertension [Recovered/Resolved]
  - Tachycardia [Recovered/Resolved]
  - Anaphylactic reaction [Recovered/Resolved]
  - Urticaria [Recovered/Resolved]

NARRATIVE: CASE EVENT DATE: 20190318
